FAERS Safety Report 13625326 (Version 1)
Quarter: 2017Q2

REPORT INFORMATION
  Report Type: Spontaneous
  Country: US (occurrence: US)
  Receive Date: 20170607
  Receipt Date: 20170607
  Transmission Date: 20170830
  Serious: Yes (Hospitalization)
  Sender: FDA-Public Use
  Company Number: None

PATIENT
  Age: 34 Year
  Sex: Male
  Weight: 99.02 kg

DRUGS (2)
  1. PREDNISONE. [Suspect]
     Active Substance: PREDNISONE
     Indication: INFLAMMATION
     Route: 048
     Dates: start: 20170424, end: 20170429
  2. PREDNISONE. [Suspect]
     Active Substance: PREDNISONE
     Route: 048
     Dates: start: 20170519, end: 20170523

REACTIONS (6)
  - Muscle twitching [None]
  - Vomiting [None]
  - Diarrhoea [None]
  - Nausea [None]
  - Muscle spasms [None]
  - Hypocalcaemia [None]

NARRATIVE: CASE EVENT DATE: 20170519
